FAERS Safety Report 23150628 (Version 2)
Quarter: 2023Q4

REPORT INFORMATION
  Report Type: Spontaneous
  Country: US (occurrence: US)
  Receive Date: 20231106
  Receipt Date: 20231219
  Transmission Date: 20240110
  Serious: Yes (Other)
  Sender: FDA-Public Use
  Company Number: US-PFIZER INC-PV202300000631

PATIENT
  Age: 86 Year
  Sex: Female
  Weight: 71.655 kg

DRUGS (3)
  1. IBRANCE [Suspect]
     Active Substance: PALBOCICLIB
     Indication: Breast cancer metastatic
     Dosage: 100 MG, CYCLIC (FOR 21 DAYS FOLLOWED BY A WEEK OFF)
     Route: 048
     Dates: start: 20221024
  2. IBRANCE [Suspect]
     Active Substance: PALBOCICLIB
     Dosage: 100 MG, CYCLIC (FOR 21 DAYS FOLLOWED BY A WEEK OFF WITH OR WITHOUT FOOD)
     Route: 048
     Dates: start: 20231130
  3. LETROZOLE [Concomitant]
     Active Substance: LETROZOLE
     Dosage: 2.5 MG, DAILY

REACTIONS (1)
  - Dementia [Unknown]
